FAERS Safety Report 9818256 (Version 1)
Quarter: 2013Q4

REPORT INFORMATION
  Report Type: Spontaneous
  Country: US (occurrence: None)
  Receive Date: 20131223
  Receipt Date: 20131223
  Transmission Date: 20140711
  Serious: No
  Sender: FDA-Public Use
  Company Number: 221855

PATIENT
  Sex: Female

DRUGS (2)
  1. PICATO GEL [Suspect]
     Indication: EYE DISORDER
     Dosage: (1 IN 1 D), TOPICAL  3 D THERAPY DATES
     Route: 061
  2. PICATO GEL [Suspect]
     Indication: NASAL DISORDER
     Dosage: (1 IN 1 D), TOPICAL  3 D THERAPY DATES
     Route: 061

REACTIONS (3)
  - Application site erythema [None]
  - Application site vesicles [None]
  - Drug administered at inappropriate site [None]
